FAERS Safety Report 4509800-0 (Version None)
Quarter: 2004Q4

REPORT INFORMATION
  Report Type: 
  Country: None (occurrence: None)
  Receive Date: 20041124
  Receipt Date: 20040803
  Transmission Date: 20050328
  Serious: No
  Sender: FDA-Public Use
  Company Number: US-BRISTOL-MYERS SQUIBB COMPANY-12659371

PATIENT
  Age: 53 Year
  Sex: Female

DRUGS (1)
  1. AVALIDE [Suspect]
     Route: 048
     Dates: start: 20000101, end: 20040801

REACTIONS (1)
  - JOINT SWELLING [None]
